FAERS Safety Report 7027718-9 (Version None)
Quarter: 2010Q4

REPORT INFORMATION
  Report Type: 
  Country: None (occurrence: None)
  Receive Date: 20101004
  Receipt Date: 20100922
  Transmission Date: 20110411
  Serious: Yes (Hospitalization)
  Sender: FDA-Public Use
  Company Number: US-GENENTECH-304403

PATIENT
  Sex: Male
  Weight: 83.9 kg

DRUGS (4)
  1. PULMOZYME [Suspect]
     Indication: CYSTIC FIBROSIS
     Dosage: 2.5 ML, BID
     Dates: start: 19940101
  2. CREON [Concomitant]
     Indication: CYSTIC FIBROSIS
  3. BROVANA [Concomitant]
     Indication: CYSTIC FIBROSIS
  4. TOBRAMYCIN [Concomitant]
     Indication: CYSTIC FIBROSIS

REACTIONS (4)
  - CHEST DISCOMFORT [None]
  - DYSPNOEA [None]
  - INCORRECT STORAGE OF DRUG [None]
  - PULMONARY FUNCTION TEST DECREASED [None]
